FAERS Safety Report 15129527 (Version 1)
Quarter: 2018Q3

REPORT INFORMATION
  Report Type: Report from Study
  Country: US (occurrence: US)
  Receive Date: 20180711
  Receipt Date: 20180711
  Transmission Date: 20181010
  Serious: Yes (Other)
  Sender: FDA-Public Use
  Company Number: US-BIOGEN-2018BI00606013

PATIENT
  Age: 64 Year
  Sex: Male

DRUGS (1)
  1. TECFIDERA [Suspect]
     Active Substance: DIMETHYL FUMARATE
     Indication: MULTIPLE SCLEROSIS
     Route: 048
     Dates: start: 20161027

REACTIONS (4)
  - Renal failure [Unknown]
  - Cardiac failure [Unknown]
  - Respiratory failure [Unknown]
  - Apparent death [Unknown]

NARRATIVE: CASE EVENT DATE: 20180520
